FAERS Safety Report 20878376 (Version 2)
Quarter: 2022Q3

REPORT INFORMATION
  Report Type: Report from Study
  Country: US (occurrence: US)
  Receive Date: 20220526
  Receipt Date: 20220810
  Transmission Date: 20221026
  Serious: Yes (Other)
  Sender: FDA-Public Use
  Company Number: US-UCBSA-2022029111

PATIENT
  Age: 62 Year
  Sex: Female
  Weight: 158 kg

DRUGS (4)
  1. LACOSAMIDE [Suspect]
     Active Substance: LACOSAMIDE
     Indication: Seizure
     Dosage: 200MG-TAKE 1 TABLET QAM AND AND 1.5 TABLETS QPM
  2. BRIVIACT [Suspect]
     Active Substance: BRIVARACETAM
     Indication: Product used for unknown indication
     Dosage: 75 MILLIGRAM, 2X/DAY (BID)
  3. BRIVIACT [Suspect]
     Active Substance: BRIVARACETAM
     Dosage: 100 MILLIGRAM, 2X/DAY (BID)
  4. ATORVASTATIN [Concomitant]
     Active Substance: ATORVASTATIN
     Indication: Blood cholesterol increased

REACTIONS (5)
  - Seizure [Recovered/Resolved]
  - COVID-19 [Recovered/Resolved]
  - Illness [Recovered/Resolved]
  - Wrong technique in product usage process [Unknown]
  - Overdose [Unknown]

NARRATIVE: CASE EVENT DATE: 20220501
